FAERS Safety Report 12682484 (Version 1)
Quarter: 2016Q3

REPORT INFORMATION
  Report Type: Spontaneous
  Country: GB (occurrence: GB)
  Receive Date: 20160825
  Receipt Date: 20160825
  Transmission Date: 20161109
  Serious: Yes (Hospitalization)
  Sender: FDA-Public Use
  Company Number: GB-ROCHE-1819025

PATIENT
  Sex: Female

DRUGS (2)
  1. XOLAIR [Suspect]
     Active Substance: OMALIZUMAB
     Indication: ANGIOEDEMA
  2. XOLAIR [Suspect]
     Active Substance: OMALIZUMAB
     Indication: CHRONIC SPONTANEOUS URTICARIA
     Dosage: 300 MG, PER 4 WEEKS
     Route: 058
     Dates: start: 20141210

REACTIONS (4)
  - Dyspnoea [Recovered/Resolved]
  - Product use issue [Unknown]
  - Wheezing [Recovered/Resolved]
  - Urticaria [Recovered/Resolved]
